FAERS Safety Report 16819647 (Version 1)
Quarter: 2019Q3

REPORT INFORMATION
  Report Type: Report from Study
  Country: CN (occurrence: CN)
  Receive Date: 20190917
  Receipt Date: 20190917
  Transmission Date: 20191005
  Serious: Yes (Hospitalization)
  Sender: FDA-Public Use
  Company Number: CN-ELI_LILLY_AND_COMPANY-CN201909003310

PATIENT
  Age: 65 Year
  Sex: Female

DRUGS (4)
  1. INSULIN, HUMAN [Suspect]
     Active Substance: INSULIN HUMAN
     Indication: DIABETES MELLITUS
     Dosage: 18 INTERNATIONAL UNIT, EACH MORNING
     Route: 058
  2. INSULIN, HUMAN [Suspect]
     Active Substance: INSULIN HUMAN
     Dosage: UNK UNK, EACH EVENING (NIGHT)
     Route: 058
  3. INSULIN, HUMAN [Suspect]
     Active Substance: INSULIN HUMAN
     Dosage: 18 IU, IN MORNING (EVERY 2-3 DAYS)
     Route: 058
  4. INSULIN, HUMAN [Suspect]
     Active Substance: INSULIN HUMAN
     Dosage: UNK UNK, IN NIGHT (EVERY 2-3 DAYS)
     Route: 058

REACTIONS (6)
  - Listless [Unknown]
  - Flank pain [Unknown]
  - Pyrexia [Unknown]
  - Blood glucose decreased [Recovered/Resolved]
  - Nasopharyngitis [Unknown]
  - Asthenia [Unknown]
